FAERS Safety Report 12695097 (Version 1)
Quarter: 2016Q3

REPORT INFORMATION
  Report Type: Spontaneous
  Country: BR (occurrence: BR)
  Receive Date: 20160829
  Receipt Date: 20160829
  Transmission Date: 20161109
  Serious: Yes (Other)
  Sender: FDA-Public Use
  Company Number: BR-JNJFOC-20160303731

PATIENT
  Age: 29 Year
  Sex: Female

DRUGS (5)
  1. REMICADE [Suspect]
     Active Substance: INFLIXIMAB
     Indication: CROHN^S DISEASE
     Route: 042
     Dates: start: 2016, end: 201605
  2. REMICADE [Suspect]
     Active Substance: INFLIXIMAB
     Indication: CROHN^S DISEASE
     Dosage: 3 VIALS STARTED 4 YEARS AGO
     Route: 042
  3. CLONAZEPAM. [Concomitant]
     Active Substance: CLONAZEPAM
     Route: 065
  4. AZATHIOPRINE. [Concomitant]
     Active Substance: AZATHIOPRINE
     Route: 065
  5. REMICADE [Suspect]
     Active Substance: INFLIXIMAB
     Indication: CROHN^S DISEASE
     Route: 042
     Dates: start: 201603

REACTIONS (10)
  - Syncope [Unknown]
  - Dyspnoea [Unknown]
  - Abdominal distension [Unknown]
  - Adverse event [Unknown]
  - Flatulence [Unknown]
  - Back pain [Unknown]
  - Psoriasis [Unknown]
  - Headache [Unknown]
  - Hypoaesthesia [Unknown]
  - Swelling [Unknown]

NARRATIVE: CASE EVENT DATE: 201506
